FAERS Safety Report 8219997-7 (Version None)
Quarter: 2012Q1

REPORT INFORMATION
  Report Type: 
  Country: None (occurrence: None)
  Receive Date: 20120319
  Receipt Date: 20120308
  Transmission Date: 20120608
  Serious: Yes (Hospitalization, Other)
  Sender: FDA-Public Use
  Company Number: JP-VERTEX PHARMACEUTICALS INC.-AE-2012-002822

PATIENT
  Age: 59 Year
  Sex: Male

DRUGS (7)
  1. PEGINTERFERON ALFA-2B [Concomitant]
     Indication: HEPATITIS C
     Route: 058
     Dates: start: 20120214
  2. TELAVIC (TELAPREVIR) [Suspect]
     Dates: start: 20120302
  3. CLOBETASOL PROPIONATE [Concomitant]
  4. ALLOPURINOL [Concomitant]
  5. TELAVIC (TELAPREVIR) [Suspect]
     Indication: HEPATITIS C
     Route: 048
     Dates: start: 20120214, end: 20120217
  6. TELAVIC (TELAPREVIR) [Suspect]
     Dates: start: 20120228, end: 20120302
  7. REBETOL [Concomitant]
     Indication: HEPATITIS C
     Route: 048
     Dates: start: 20120214

REACTIONS (2)
  - HYPERURICAEMIA [None]
  - RENAL FAILURE ACUTE [None]
